FAERS Safety Report 6589870-9 (Version None)
Quarter: 2010Q1

REPORT INFORMATION
  Report Type: 
  Country: None (occurrence: None)
  Receive Date: 20100219
  Receipt Date: 20100204
  Transmission Date: 20100710
  Serious: No
  Sender: FDA-Public Use
  Company Number: US-JNJFOC-20100203438

PATIENT
  Sex: Female
  Weight: 53.52 kg

DRUGS (3)
  1. FENTANYL-100 [Suspect]
     Indication: BACK PAIN
     Route: 062
  2. SOMA [Concomitant]
     Indication: MUSCLE SPASMS
     Route: 048
  3. VALIUM [Concomitant]
     Indication: SLEEP DISORDER
     Route: 048

REACTIONS (2)
  - APPLICATION SITE ERYTHEMA [None]
  - WRONG TECHNIQUE IN DRUG USAGE PROCESS [None]
